FAERS Safety Report 8584895 (Version 6)
Quarter: 2013Q4

REPORT INFORMATION
  Report Type: Spontaneous
  Country: US (occurrence: US)
  Receive Date: 20120530
  Receipt Date: 20131111
  Transmission Date: 20140711
  Serious: Yes (Hospitalization)
  Sender: FDA-Public Use
  Company Number: US-BIOGENIDEC-2012BI018238

PATIENT
  Age: 46 Year
  Sex: Female

DRUGS (5)
  1. AVONEX [Suspect]
     Indication: MULTIPLE SCLEROSIS
     Route: 030
     Dates: start: 20010302, end: 20040913
  2. AVONEX [Suspect]
     Indication: MULTIPLE SCLEROSIS
     Route: 030
     Dates: start: 20090108
  3. AVONEX [Suspect]
     Indication: MULTIPLE SCLEROSIS
     Route: 030
     Dates: start: 20090807
  4. AVONEX [Suspect]
     Indication: MULTIPLE SCLEROSIS
     Route: 030
     Dates: end: 201203
  5. AVONEX [Suspect]
     Indication: MULTIPLE SCLEROSIS
     Route: 030

REACTIONS (27)
  - Road traffic accident [Recovered/Resolved]
  - Hand fracture [Recovered/Resolved]
  - Localised infection [Recovered/Resolved]
  - Upper limb fracture [Recovered/Resolved]
  - Laceration [Recovered/Resolved]
  - Contusion [Recovered/Resolved]
  - Pulmonary contusion [Recovered/Resolved]
  - Skin disorder [Recovered/Resolved]
  - Ill-defined disorder [Recovered/Resolved]
  - Musculoskeletal disorder [Recovered/Resolved]
  - Optic neuritis [Unknown]
  - Blindness unilateral [Recovered/Resolved with Sequelae]
  - Fall [Recovered/Resolved]
  - General physical health deterioration [Recovered/Resolved with Sequelae]
  - Drug dose omission [Recovered/Resolved]
  - General symptom [Unknown]
  - Cough [Unknown]
  - Balance disorder [Not Recovered/Not Resolved]
  - Coordination abnormal [Not Recovered/Not Resolved]
  - Hypoaesthesia [Not Recovered/Not Resolved]
  - Limb crushing injury [Recovered/Resolved]
  - Finger deformity [Not Recovered/Not Resolved]
  - Influenza like illness [Recovered/Resolved]
  - Injection site pain [Recovered/Resolved]
  - Anxiety [Unknown]
  - Dizziness [Not Recovered/Not Resolved]
  - Paraesthesia [Not Recovered/Not Resolved]
